FAERS Safety Report 8302282-2 (Version None)
Quarter: 2012Q2

REPORT INFORMATION
  Report Type: 
  Country: None (occurrence: None)
  Receive Date: 20120420
  Receipt Date: 20120412
  Transmission Date: 20120825
  Serious: Yes (Hospitalization, Other)
  Sender: FDA-Public Use
  Company Number: US-JNJFOC-20101007322

PATIENT
  Sex: Female

DRUGS (10)
  1. LEVAQUIN [Suspect]
     Indication: UPPER RESPIRATORY TRACT INFECTION
     Route: 048
     Dates: start: 20080630, end: 20080707
  2. LEVAQUIN [Suspect]
     Route: 048
     Dates: start: 20080630, end: 20080707
  3. LEVAQUIN [Suspect]
     Indication: BRONCHITIS
     Route: 048
     Dates: start: 20080812, end: 20080817
  4. LEVAQUIN [Suspect]
     Route: 048
     Dates: start: 20080812, end: 20080817
  5. LEVAQUIN [Suspect]
     Route: 048
     Dates: start: 20080527, end: 20080601
  6. LEVAQUIN [Suspect]
     Route: 048
     Dates: start: 20080527, end: 20080601
  7. LEVAQUIN [Suspect]
     Route: 048
     Dates: start: 20080527, end: 20080601
  8. LEVAQUIN [Suspect]
     Indication: PNEUMONIA
     Route: 048
     Dates: start: 20080630, end: 20080707
  9. PREDNISONE TAB [Suspect]
     Indication: SYSTEMIC LUPUS ERYTHEMATOSUS
     Route: 065
  10. LEVAQUIN [Suspect]
     Route: 048
     Dates: start: 20080812, end: 20080817

REACTIONS (9)
  - TENDONITIS [None]
  - ANXIETY [None]
  - CARPAL TUNNEL SYNDROME [None]
  - TENDON RUPTURE [None]
  - MYALGIA [None]
  - MYOSITIS [None]
  - DEPRESSION [None]
  - ROTATOR CUFF SYNDROME [None]
  - TENOSYNOVITIS [None]
